FAERS Safety Report 9307552 (Version 1)
Quarter: 2013Q2

REPORT INFORMATION
  Report Type: Report from Study
  Country: CA (occurrence: CA)
  Receive Date: 20130524
  Receipt Date: 20130524
  Transmission Date: 20140414
  Serious: Yes (Other)
  Sender: FDA-Public Use
  Company Number: CA-JNJFOC-20130514812

PATIENT
  Age: 66 Year
  Sex: Female
  Weight: 71.3 kg

DRUGS (1)
  1. REMICADE [Suspect]
     Indication: PSORIATIC ARTHROPATHY
     Route: 042
     Dates: start: 20120329

REACTIONS (3)
  - Fall [Recovering/Resolving]
  - Laceration [Recovering/Resolving]
  - Humerus fracture [Recovering/Resolving]
